FAERS Safety Report 14740416 (Version 2)
Quarter: 2018Q2

REPORT INFORMATION
  Report Type: Spontaneous
  Country: JP (occurrence: JP)
  Receive Date: 20180410
  Receipt Date: 20180417
  Transmission Date: 20180711
  Serious: Yes (Other)
  Sender: FDA-Public Use
  Company Number: JP-ROCHE-2100028

PATIENT
  Age: 70 Year
  Sex: Male
  Weight: 46 kg

DRUGS (7)
  1. PEMETREXED SODIUM HYDRATE [Concomitant]
     Active Substance: PEMETREXED
     Indication: NON-SMALL CELL LUNG CANCER
     Route: 041
     Dates: start: 20170907, end: 2017
  2. CARBOPLATIN. [Concomitant]
     Active Substance: CARBOPLATIN
     Indication: NON-SMALL CELL LUNG CANCER
     Route: 041
     Dates: start: 20170907, end: 2017
  3. PEMETREXED SODIUM HYDRATE [Concomitant]
     Active Substance: PEMETREXED
     Route: 041
     Dates: start: 20171227, end: 20180219
  4. AVASTIN [Suspect]
     Active Substance: BEVACIZUMAB
     Indication: NON-SMALL CELL LUNG CANCER
     Route: 041
     Dates: start: 20141002, end: 20171129
  5. CARBOPLATIN. [Concomitant]
     Active Substance: CARBOPLATIN
     Route: 041
     Dates: start: 20171002
  6. AVASTIN [Suspect]
     Active Substance: BEVACIZUMAB
     Route: 041
     Dates: start: 20171227, end: 20180311
  7. PEMETREXED SODIUM HYDRATE [Concomitant]
     Active Substance: PEMETREXED
     Route: 041
     Dates: start: 20171002

REACTIONS (3)
  - Aorto-oesophageal fistula [Recovering/Resolving]
  - Oesophagobronchial fistula [Recovered/Resolved with Sequelae]
  - Oesophageal ulcer [Unknown]

NARRATIVE: CASE EVENT DATE: 201712
